FAERS Safety Report 5487572-3 (Version None)
Quarter: 2007Q4

REPORT INFORMATION
  Report Type: 
  Country: None (occurrence: None)
  Receive Date: 20071015
  Receipt Date: 20070927
  Transmission Date: 20080405
  Serious: Yes (Hospitalization)
  Sender: FDA-Public Use
  Company Number: ENT 2007-0167

PATIENT
  Age: 84 Year
  Sex: Male

DRUGS (2)
  1. COMTAN [Suspect]
     Indication: PARKINSON'S DISEASE
     Dosage: 600 MG (200 MG, 3 IN 1 D)
  2. SINEMET [Concomitant]

REACTIONS (2)
  - DYSPHAGIA [None]
  - FALL [None]
